FAERS Safety Report 7375888-5 (Version None)
Quarter: 2011Q1

REPORT INFORMATION
  Report Type: 
  Country: None (occurrence: None)
  Receive Date: 20110325
  Receipt Date: 20110318
  Transmission Date: 20110831
  Serious: Yes (Hospitalization)
  Sender: FDA-Public Use
  Company Number: B0674139A

PATIENT
  Sex: Female

DRUGS (9)
  1. VITAMIN B [Concomitant]
     Indication: VITAMIN SUPPLEMENTATION
     Route: 048
     Dates: start: 20100406
  2. EXTRANEAL [Suspect]
     Indication: RENAL FAILURE
     Dosage: 2000ML PER DAY
     Route: 033
     Dates: start: 20100805, end: 20100812
  3. FOLINSYRE [Concomitant]
     Route: 048
     Dates: start: 20100406
  4. UNKNOWN DRUG [Concomitant]
     Dosage: 400MG PER DAY
     Route: 048
     Dates: start: 20100309
  5. ACYCLOVIR [Concomitant]
     Indication: HERPES VIRUS INFECTION
     Dosage: 200MG PER DAY
     Route: 048
     Dates: start: 20100817
  6. ASCORBIC ACID [Concomitant]
     Indication: VITAMIN SUPPLEMENTATION
     Dosage: 75MG PER DAY
     Route: 048
     Dates: start: 20100406
  7. VITAMIN D [Concomitant]
     Indication: VITAMIN SUPPLEMENTATION
     Dosage: 10MCG PER DAY
     Route: 048
     Dates: start: 20100309
  8. AMLODIPINE [Concomitant]
     Dosage: 10MG PER DAY
     Route: 048
     Dates: start: 20100406, end: 20110308
  9. ZINACEF [Suspect]
     Indication: PERITONITIS
     Dosage: 750MG PER DAY
     Route: 065
     Dates: start: 20100805, end: 20100806

REACTIONS (1)
  - DERMATITIS EXFOLIATIVE [None]
